FAERS Safety Report 16573640 (Version 3)
Quarter: 2020Q1

REPORT INFORMATION
  Report Type: Spontaneous
  Country: IT (occurrence: IT)
  Receive Date: 20190715
  Receipt Date: 20200226
  Transmission Date: 20200409
  Serious: Yes (Death, Hospitalization)
  Sender: FDA-Public Use
  Company Number: IT-CELGENEUS-ITA-20190704594

PATIENT
  Age: 82 Year
  Sex: Female
  Weight: 58 kg

DRUGS (14)
  1. PRACINOSTAT [Concomitant]
     Active Substance: PRACINOSTAT
     Indication: ACUTE MYELOID LEUKAEMIA
     Dosage: 60 MILLIGRAM
     Route: 048
     Dates: start: 20190506, end: 20190611
  2. ALBUMIN [Concomitant]
     Active Substance: ALBUMIN HUMAN
     Indication: HYPOVOLAEMIA
     Dosage: 50 MILLIGRAM
     Route: 041
     Dates: start: 20190612, end: 20190618
  3. HUMAN ANTITHROMBIN III [Concomitant]
     Indication: ANTITHROMBIN III
     Dosage: 1000 INTERNATIONAL UNITS MILLIONS
     Route: 041
     Dates: start: 20190614
  4. RANITIDINE. [Concomitant]
     Active Substance: RANITIDINE
     Indication: PROPHYLAXIS
     Dosage: 150 MILLIGRAM
     Route: 048
     Dates: start: 20190415
  5. DOPAMINE [Concomitant]
     Active Substance: DOPAMINE HYDROCHLORIDE
     Indication: SHOCK
     Dosage: 50 MILLIGRAM
     Route: 041
     Dates: start: 20190612, end: 20190618
  6. LAMIVUDINE. [Concomitant]
     Active Substance: LAMIVUDINE
     Indication: PROPHYLAXIS
     Dosage: 100 MILLIGRAM
     Route: 048
     Dates: start: 20190506
  7. AZACITIDINE. [Suspect]
     Active Substance: AZACITIDINE
     Indication: ACUTE MYELOID LEUKAEMIA
     Dosage: 75 MILLIGRAM/SQ. METER
     Route: 058
     Dates: start: 20190506, end: 20190610
  8. ENOXAPARIN [Concomitant]
     Active Substance: ENOXAPARIN
     Indication: PROPHYLAXIS
     Dosage: 6000 IU (INTERNATIONAL UNIT)
     Route: 058
     Dates: start: 20190415
  9. ALLOPURINOL. [Concomitant]
     Active Substance: ALLOPURINOL
     Indication: HYPERURICAEMIA
     Dosage: 300 MILLIGRAM
     Route: 048
     Dates: start: 20190415
  10. POSACONAZOLE [Concomitant]
     Active Substance: POSACONAZOLE
     Indication: PROPHYLAXIS
     Dosage: 300 MILLIGRAM
     Route: 048
     Dates: start: 20190415
  11. POTASSIUM CANRENOATE [Concomitant]
     Active Substance: CANRENOATE POTASSIUM
     Indication: HYPOVOLAEMIA
     Dosage: 200 MILLIGRAM
     Route: 041
     Dates: start: 20190612, end: 20190613
  12. AMLODIPINE BESILATE [Concomitant]
     Active Substance: AMLODIPINE BESYLATE
     Indication: HYPERTENSION
     Dosage: 5 MILLIGRAM
     Route: 048
     Dates: start: 1986
  13. SULFAMETOXAZOL + TRIMETOPRIMA [Concomitant]
     Active Substance: SULFAMETHOXAZOLE\TRIMETHOPRIM
     Indication: PROPHYLAXIS
     Dosage: 160/800 MG
     Route: 048
     Dates: start: 20190415
  14. NEBIVOLOLO [Concomitant]
     Active Substance: NEBIVOLOL
     Indication: HYPERTENSION
     Dosage: 5 MILLIGRAM
     Route: 048
     Dates: start: 1986

REACTIONS (1)
  - Klebsiella sepsis [Fatal]

NARRATIVE: CASE EVENT DATE: 20190611
